FAERS Safety Report 12564810 (Version 1)
Quarter: 2016Q3

REPORT INFORMATION
  Report Type: Spontaneous
  Country: US (occurrence: None)
  Receive Date: 20160715
  Receipt Date: 20160715
  Transmission Date: 20161109
  Serious: Yes (Other)
  Sender: FDA-Public Use
  Company Number: None

PATIENT
  Age: 55 Year
  Sex: Female
  Weight: 67 kg

DRUGS (3)
  1. RAMPIRIL [Concomitant]
     Active Substance: RAMIPRIL
  2. EFFEXOR [Concomitant]
     Active Substance: VENLAFAXINE HYDROCHLORIDE
  3. FLUCLOXACILLIN [Suspect]
     Active Substance: FLUCLOXACILLIN
     Indication: STAPHYLOCOCCAL INFECTION
     Dosage: EVERY 6 HOURS
     Route: 048
     Dates: start: 20150112, end: 20150812

REACTIONS (2)
  - Hepatic enzyme increased [None]
  - Jaundice [None]

NARRATIVE: CASE EVENT DATE: 20150112
